FAERS Safety Report 9901724 (Version 1)
Quarter: 2014Q1

REPORT INFORMATION
  Report Type: Report from Study
  Country: BR (occurrence: BR)
  Receive Date: 20140217
  Receipt Date: 20140217
  Transmission Date: 20141002
  Serious: Yes (Hospitalization)
  Sender: FDA-Public Use
  Company Number: PHHY2014BR016869

PATIENT
  Sex: Female
  Weight: 63 kg

DRUGS (4)
  1. ONBREZ [Suspect]
     Indication: BRONCHIECTASIS
     Dosage: 2 DF, QD ONCE IN THE MORNING
     Route: 055
     Dates: start: 20140131, end: 20140204
  2. SIMVASTATIN [Suspect]
     Indication: BLOOD CHOLESTEROL
     Dosage: 40 MG
  3. CARDIZEM [Concomitant]
     Indication: ARRHYTHMIA
     Dosage: UNK
  4. CARDIZEM [Concomitant]
     Indication: BLOOD PRESSURE

REACTIONS (4)
  - Spinal pain [Unknown]
  - Pain [Unknown]
  - Malaise [Unknown]
  - Inappropriate schedule of drug administration [Unknown]
